FAERS Safety Report 5125703-5 (Version None)
Quarter: 2006Q4

REPORT INFORMATION
  Report Type: 
  Country: None (occurrence: None)
  Receive Date: 20061012
  Receipt Date: 20061004
  Transmission Date: 20070319
  Serious: Yes (Other)
  Sender: FDA-Public Use
  Company Number: US-JNJFOC-20061001580

PATIENT
  Sex: Female
  Weight: 104.33 kg

DRUGS (12)
  1. DURAGESIC-100 [Suspect]
     Indication: PAIN
     Route: 062
  2. ROBAXIN [Concomitant]
     Indication: MUSCLE SPASMS
     Route: 065
  3. TEGRETOL [Concomitant]
     Indication: CONVULSION
     Route: 065
  4. LIPITOR [Concomitant]
     Indication: BLOOD CHOLESTEROL INCREASED
     Route: 065
  5. SYNTHROID [Concomitant]
     Indication: HYPOTHYROIDISM
     Route: 065
  6. IMITREX [Concomitant]
     Indication: DRUG USE FOR UNKNOWN INDICATION
     Dosage: AS NEEDED
     Route: 065
  7. DITROPAN [Concomitant]
     Route: 065
  8. CALCIUM GLUCONATE [Concomitant]
     Indication: OSTEOPOROSIS
     Route: 048
  9. PREMARIN CREAM [Concomitant]
     Indication: VULVOVAGINAL DRYNESS
     Route: 065
  10. SINGULAIR [Concomitant]
     Indication: NASAL CONGESTION
     Route: 065
  11. SINGULAIR [Concomitant]
     Indication: MULTIPLE ALLERGIES
     Route: 065
  12. ACTOS [Concomitant]
     Indication: DIABETES MELLITUS
     Route: 065

REACTIONS (3)
  - APPLICATION SITE DERMATITIS [None]
  - DIABETES MELLITUS [None]
  - HYPERTENSION [None]
